FAERS Safety Report 25461267 (Version 4)
Quarter: 2025Q4

REPORT INFORMATION
  Report Type: Spontaneous
  Country: JP (occurrence: JP)
  Receive Date: 20250620
  Receipt Date: 20251016
  Transmission Date: 20260117
  Serious: Yes (Life-Threatening)
  Sender: ABBVIE
  Company Number: JP-ABBVIE-6333547

PATIENT
  Age: 20 Year
  Sex: Male

DRUGS (3)
  1. RINVOQ [Suspect]
     Active Substance: UPADACITINIB
     Indication: Dermatitis atopic
     Dosage: FORM STRENGTH 15 MILLIGRAM
     Route: 048
     Dates: start: 202508
  2. RINVOQ [Suspect]
     Active Substance: UPADACITINIB
     Indication: Dermatitis atopic
     Dosage: FORM STRENGTH 15 MILLIGRAM
     Route: 048
     Dates: start: 202307, end: 202308
  3. CIBINQO [Suspect]
     Active Substance: ABROCITINIB
     Indication: Dermatitis atopic
     Route: 065
     Dates: start: 202407

REACTIONS (8)
  - Cardiac failure [Not Recovered/Not Resolved]
  - Anaemia [Unknown]
  - Inflammation [Unknown]
  - Pruritus [Unknown]
  - Nasopharyngitis [Unknown]
  - Pericarditis tuberculous [Not Recovered/Not Resolved]
  - Unevaluable event [Unknown]
  - Pleural effusion [Unknown]

NARRATIVE: CASE EVENT DATE: 20240101
